FAERS Safety Report 4401632-7 (Version None)
Quarter: 2004Q3

REPORT INFORMATION
  Report Type: 
  Country: None (occurrence: None)
  Receive Date: 20040714
  Receipt Date: 20040701
  Transmission Date: 20050211
  Serious: Yes (Death)
  Sender: FDA-Public Use
  Company Number: 2004045177

PATIENT
  Sex: Female

DRUGS (2)
  1. NEURONTIN [Suspect]
     Indication: FIBROMYALGIA
     Dosage: 300 MG (300 MG, 1 IN 1 D), ORAL
     Route: 048
     Dates: start: 20040101, end: 20040101
  2. ALL OTHER THERAPEUTIC PRODUCTS (ALL OTHER THERAPEUTIC PRODUCTS) [Concomitant]

REACTIONS (1)
  - SUDDEN DEATH [None]
